FAERS Safety Report 11343285 (Version 1)
Quarter: 2015Q3

REPORT INFORMATION
  Report Type: Spontaneous
  Country: US (occurrence: US)
  Receive Date: 20150806
  Receipt Date: 20150806
  Transmission Date: 20151125
  Serious: No
  Sender: FDA-Public Use
  Company Number: US-BRISTOL-MYERS SQUIBB COMPANY-BMS-2015-050514

PATIENT
  Sex: Male

DRUGS (1)
  1. OPDIVO [Suspect]
     Active Substance: NIVOLUMAB
     Indication: LUNG DISORDER
     Dosage: UNK, Q2WK
     Route: 065

REACTIONS (4)
  - Rash [Unknown]
  - Mouth ulceration [Unknown]
  - Pain in extremity [Unknown]
  - Asthenia [Unknown]
